FAERS Safety Report 6234333-3 (Version None)
Quarter: 2009Q2

REPORT INFORMATION
  Report Type: 
  Country: None (occurrence: None)
  Receive Date: 20090615
  Receipt Date: 20090508
  Transmission Date: 20091009
  Serious: No
  Sender: FDA-Public Use
  Company Number: DSA_33614_2009

PATIENT
  Sex: Male

DRUGS (2)
  1. XENAZINE [Suspect]
     Indication: TOURETTE'S DISORDER
     Dosage: 12MG, HALF A TABLET ONCE OR TWICE DAILY
     Dates: start: 20090420, end: 20090504
  2. CITALOPRAM HYDROBROMIDE [Concomitant]

REACTIONS (2)
  - MUSCULOSKELETAL STIFFNESS [None]
  - OBSESSIVE-COMPULSIVE DISORDER [None]
